FAERS Safety Report 8301575-2 (Version None)
Quarter: 2012Q2

REPORT INFORMATION
  Report Type: 
  Country: None (occurrence: None)
  Receive Date: 20120420
  Receipt Date: 20120411
  Transmission Date: 20120825
  Serious: Yes (Other)
  Sender: FDA-Public Use
  Company Number: CA-JNJFOC-20120405755

PATIENT
  Sex: Female
  Weight: 77 kg

DRUGS (2)
  1. REMICADE [Suspect]
     Route: 042
     Dates: start: 20111102
  2. REMICADE [Suspect]
     Indication: CROHN'S DISEASE
     Route: 042
     Dates: start: 20120404

REACTIONS (11)
  - PRURITUS [None]
  - CHILLS [None]
  - MIGRAINE [None]
  - CONSCIOUSNESS FLUCTUATING [None]
  - ALOPECIA [None]
  - DIZZINESS [None]
  - PAIN [None]
  - ARTHRALGIA [None]
  - SKIN WARM [None]
  - INFUSION RELATED REACTION [None]
  - NAUSEA [None]
